FAERS Safety Report 9686978 (Version 1)
Quarter: 2013Q4

REPORT INFORMATION
  Report Type: Spontaneous
  Country: GB (occurrence: GB)
  Receive Date: 20131113
  Receipt Date: 20131113
  Transmission Date: 20140711
  Serious: Yes (Life-Threatening, Hospitalization, Disabling, Other)
  Sender: FDA-Public Use
  Company Number: PHHY2013GB128078

PATIENT
  Age: 16 Year
  Sex: Male
  Weight: 63.5 kg

DRUGS (4)
  1. DIAZEPAM [Suspect]
     Indication: ROAD TRAFFIC ACCIDENT
     Route: 048
  2. ATIVAN [Suspect]
     Indication: ROAD TRAFFIC ACCIDENT
     Dosage: UNK (HIGH DOSES UNDER DOCTOR^S APPROVAL)
     Route: 048
  3. TRANXENE [Suspect]
     Indication: ROAD TRAFFIC ACCIDENT
     Route: 048
  4. HALCION [Suspect]
     Indication: ROAD TRAFFIC ACCIDENT
     Route: 048

REACTIONS (18)
  - Panic disorder [Not Recovered/Not Resolved]
  - Agoraphobia [Not Recovered/Not Resolved]
  - Post-traumatic stress disorder [Not Recovered/Not Resolved]
  - Phobia [Not Recovered/Not Resolved]
  - Fear [Not Recovered/Not Resolved]
  - Vomiting [Not Recovered/Not Resolved]
  - Bladder disorder [Not Recovered/Not Resolved]
  - Functional gastrointestinal disorder [Not Recovered/Not Resolved]
  - Pain [Not Recovered/Not Resolved]
  - Migraine [Not Recovered/Not Resolved]
  - Mental disorder [Not Recovered/Not Resolved]
  - Emotional disorder [Not Recovered/Not Resolved]
  - Feeling abnormal [Not Recovered/Not Resolved]
  - Poisoning [Unknown]
  - Medication error [Unknown]
  - Brain injury [Unknown]
  - Suicidal ideation [Unknown]
  - Nervous system disorder [Unknown]
